FAERS Safety Report 7346301-9 (Version None)
Quarter: 2011Q1

REPORT INFORMATION
  Report Type: 
  Country: None (occurrence: None)
  Receive Date: 20110228
  Receipt Date: 20110210
  Transmission Date: 20110831
  Serious: No
  Sender: FDA-Public Use
  Company Number: PHHY2011CH11487

PATIENT
  Sex: Female

DRUGS (8)
  1. LAMICTAL [Concomitant]
  2. SIRDALUD (TIZANIDINE HYDROCHLORIDE) UNKNOWN [Suspect]
     Indication: SLEEP DISORDER
     Dosage: 80 MG/DAY;
  3. REMERON [Concomitant]
  4. EFFEXOR XR [Concomitant]
  5. ABILIFY [Concomitant]
  6. RIVOTRIL (CLONAZEPAM) [Concomitant]
  7. IMPLANON [Concomitant]
  8. ZOLPIDEM TARTRATE [Concomitant]

REACTIONS (3)
  - DRUG ABUSE [None]
  - OVERDOSE [None]
  - OFF LABEL USE [None]
